FAERS Safety Report 12791420 (Version 1)
Quarter: 2016Q3

REPORT INFORMATION
  Report Type: Report from Study
  Country: US (occurrence: US)
  Receive Date: 20160929
  Receipt Date: 20160929
  Transmission Date: 20161109
  Serious: Yes (Other)
  Sender: FDA-Public Use
  Company Number: US-AMGEN-USASL2016131031

PATIENT
  Age: 46 Year
  Sex: Female

DRUGS (2)
  1. ENBREL [Suspect]
     Active Substance: ETANERCEPT
     Indication: PSORIATIC ARTHROPATHY
     Dosage: UNK
     Route: 065
  2. PREDNISONE. [Suspect]
     Active Substance: PREDNISONE
     Indication: PRODUCT USED FOR UNKNOWN INDICATION
     Dosage: UNK
     Route: 065

REACTIONS (7)
  - Weight increased [Unknown]
  - Diabetes mellitus [Unknown]
  - Intentional product misuse [Unknown]
  - Memory impairment [Unknown]
  - Blood glucose increased [Unknown]
  - Drug dose omission [Unknown]
  - Unevaluable event [Not Recovered/Not Resolved]

NARRATIVE: CASE EVENT DATE: 2012
